FAERS Safety Report 4775735-1 (Version None)
Quarter: 2005Q3

REPORT INFORMATION
  Report Type: 
  Country: None (occurrence: None)
  Receive Date: 20050921
  Receipt Date: 20050921
  Transmission Date: 20060218
  Serious: Yes (Hospitalization, Other)
  Sender: FDA-Public Use
  Company Number: None

PATIENT
  Sex: Female
  Weight: 62.9 kg

DRUGS (5)
  1. RITUXAN [Suspect]
     Indication: DIFFUSE LARGE B-CELL LYMPHOMA
     Dosage: 620 MG IV DAY 1
     Route: 042
     Dates: start: 20050819
  2. CYTOXAN [Suspect]
     Dosage: 1238 MG IV DAY 1
     Route: 042
  3. DOXIL [Suspect]
     Dosage: 66 MG IV DAY 1
     Route: 042
     Dates: start: 20050819, end: 20050819
  4. VINCRISTINE [Suspect]
     Dosage: 2 MG IV DAY 1
     Route: 042
  5. PREDNISONE [Suspect]
     Dosage: 60 MG ORALLY DAY 1-5
     Route: 048

REACTIONS (3)
  - FALL [None]
  - PUBIC RAMI FRACTURE [None]
  - SHOULDER PAIN [None]
